FAERS Safety Report 17159354 (Version 1)
Quarter: 2019Q4

REPORT INFORMATION
  Report Type: Spontaneous
  Country: DE (occurrence: DE)
  Receive Date: 20191216
  Receipt Date: 20191216
  Transmission Date: 20200122
  Serious: Yes (Other)
  Sender: FDA-Public Use
  Company Number: DE-GLAXOSMITHKLINE-DE2019225134

PATIENT
  Age: 15 Year
  Sex: Male

DRUGS (1)
  1. VIANI MITE [Suspect]
     Active Substance: FLUTICASONE PROPIONATE\SALMETEROL XINAFOATE
     Indication: PRODUCT USED FOR UNKNOWN INDICATION
     Dosage: UNK
     Dates: end: 20191120

REACTIONS (6)
  - Unresponsive to stimuli [Unknown]
  - Weight decreased [Unknown]
  - Blood pressure decreased [Unknown]
  - Product prescribing issue [Unknown]
  - Muscle spasms [Unknown]
  - Somnolence [Unknown]
